FAERS Safety Report 19917908 (Version 2)
Quarter: 2021Q4

REPORT INFORMATION
  Report Type: Spontaneous
  Country: JP (occurrence: JP)
  Receive Date: 20211005
  Receipt Date: 20211006
  Transmission Date: 20220303
  Serious: Yes (Disabling, Other)
  Sender: FDA-Public Use
  Company Number: JP-NBI-J202119026BIPI

PATIENT
  Sex: Male

DRUGS (1)
  1. JARDIANCE [Suspect]
     Active Substance: EMPAGLIFLOZIN
     Indication: Product used for unknown indication
     Route: 048

REACTIONS (8)
  - Cerebral infarction [Recovered/Resolved with Sequelae]
  - Blood pressure increased [Unknown]
  - Genital discharge [Unknown]
  - Dyspnoea [Unknown]
  - Back pain [Unknown]
  - Weight decreased [Unknown]
  - Dysarthria [Unknown]
  - Red blood cell count increased [Unknown]
